FAERS Safety Report 5361251-5 (Version None)
Quarter: 2007Q2

REPORT INFORMATION
  Report Type: 
  Country: None (occurrence: None)
  Receive Date: 20070614
  Receipt Date: 20070601
  Transmission Date: 20071010
  Serious: Yes (Hospitalization)
  Sender: FDA-Public Use
  Company Number: 2007-00176

PATIENT
  Age: 43 Year
  Sex: Female

DRUGS (10)
  1. VELCADE [Suspect]
     Indication: MULTIPLE MYELOMA
     Dosage: 1.30 MG/M2
     Dates: start: 20070112, end: 20070208
  2. DECADRON [Suspect]
     Indication: PNEUMONIA ASPIRATION
     Dosage: 20.00 MG
     Dates: start: 20070117
  3. DIFLUCAN [Concomitant]
  4. ACYCLOVIR [Concomitant]
  5. SUCRALFATE [Concomitant]
  6. MAGNESIUM OXIDE (MAGNESIUM OXIDE) [Concomitant]
  7. SULFAMETHOXAZOLE + TRIMETHOPRIM [Concomitant]
  8. NOVAMIN (PROCHLORPERAZINE) [Concomitant]
  9. LORAZEPAM [Concomitant]
  10. PRIMPERAN TAB [Concomitant]

REACTIONS (13)
  - ANAEMIA [None]
  - ASPARTATE AMINOTRANSFERASE INCREASED [None]
  - BLOOD LACTATE DEHYDROGENASE INCREASED [None]
  - BLOOD POTASSIUM DECREASED [None]
  - BRADYCARDIA [None]
  - DIARRHOEA [None]
  - HYPOAESTHESIA [None]
  - INTERSTITIAL LUNG DISEASE [None]
  - PLATELET COUNT DECREASED [None]
  - PNEUMONIA ASPIRATION [None]
  - TUMOUR LYSIS SYNDROME [None]
  - WEIGHT INCREASED [None]
  - WHITE BLOOD CELL COUNT DECREASED [None]
